FAERS Safety Report 8215484-0 (Version None)
Quarter: 2012Q1

REPORT INFORMATION
  Report Type: 
  Country: None (occurrence: None)
  Receive Date: 20120316
  Receipt Date: 20120307
  Transmission Date: 20120608
  Serious: No
  Sender: FDA-Public Use
  Company Number: JP-JNJFOC-20120305862

PATIENT

DRUGS (1)
  1. FENTANYL-100 [Suspect]
     Indication: BREAKTHROUGH PAIN
     Route: 062

REACTIONS (3)
  - ANXIETY [None]
  - DRUG PRESCRIBING ERROR [None]
  - PAIN [None]
